FAERS Safety Report 9472771 (Version 2)
Quarter: 2013Q4

REPORT INFORMATION
  Report Type: Spontaneous
  Country: US (occurrence: US)
  Receive Date: 20130823
  Receipt Date: 20131001
  Transmission Date: 20140711
  Serious: No
  Sender: FDA-Public Use
  Company Number: US-PFIZER INC-2013243165

PATIENT
  Age: 67 Year
  Sex: Female
  Weight: 74.83 kg

DRUGS (4)
  1. LYRICA [Suspect]
     Indication: TRIGEMINAL NEURALGIA
     Dosage: UNK, 3X/DAY
     Route: 048
     Dates: start: 2013
  2. LYRICA [Suspect]
     Indication: NEURALGIA
  3. VIIBRYD [Concomitant]
     Indication: DEPRESSION
     Dosage: UNK
  4. SYNTHROID [Concomitant]
     Dosage: UNK

REACTIONS (6)
  - Intentional drug misuse [Unknown]
  - Euphoric mood [Unknown]
  - Drug withdrawal syndrome [Unknown]
  - Crying [Unknown]
  - Depressed mood [Unknown]
  - Mood altered [Recovered/Resolved]
